FAERS Safety Report 11267000 (Version 1)
Quarter: 2015Q3

REPORT INFORMATION
  Report Type: Other
  Country: US (occurrence: US)
  Receive Date: 20150713
  Receipt Date: 20150713
  Transmission Date: 20151125
  Serious: Yes (Other)
  Sender: FDA-Public Use
  Company Number: US-CREALTA PHARMACEUTICALS-2015S1000035

PATIENT
  Age: 50 Year
  Sex: Male

DRUGS (1)
  1. OXANDROLONE. [Suspect]
     Active Substance: OXANDROLONE
     Indication: EATING DISORDER
     Route: 048

REACTIONS (2)
  - Headache [Unknown]
  - Hepatic function abnormal [Unknown]
